FAERS Safety Report 9007375 (Version 1)
Quarter: 2013Q1

REPORT INFORMATION
  Report Type: Spontaneous
  Country: US (occurrence: US)
  Receive Date: 20130110
  Receipt Date: 20130110
  Transmission Date: 20140127
  Serious: No
  Sender: FDA-Public Use
  Company Number: US-ASTRAZENECA-2012SE96577

PATIENT
  Age: 61 Year
  Sex: Female
  Weight: 49.4 kg

DRUGS (6)
  1. NEXIUM [Suspect]
     Indication: GASTROOESOPHAGEAL REFLUX DISEASE
     Route: 048
     Dates: start: 201210
  2. NEXIUM [Suspect]
     Indication: GASTROOESOPHAGEAL REFLUX DISEASE
     Route: 048
     Dates: start: 20121123
  3. PRILOSEC [Suspect]
     Indication: GASTROOESOPHAGEAL REFLUX DISEASE
     Route: 048
     Dates: end: 201211
  4. SYNTHROID [Concomitant]
     Indication: THYROID DISORDER
  5. RESTORIL [Concomitant]
     Indication: SLEEP DISORDER
  6. COMBIVENT [Concomitant]
     Indication: MULTIPLE ALLERGIES

REACTIONS (6)
  - Disease recurrence [Recovering/Resolving]
  - Mucous stools [Unknown]
  - Gastric disorder [Unknown]
  - Malaise [Unknown]
  - Drug dose omission [Unknown]
  - Drug ineffective [Unknown]
